FAERS Safety Report 24551548 (Version 2)
Quarter: 2025Q3

REPORT INFORMATION
  Report Type: Report from Study
  Country: ID (occurrence: ID)
  Receive Date: 20241026
  Receipt Date: 20250803
  Transmission Date: 20251020
  Serious: Yes (Death, Other)
  Sender: ALEXION PHARMACEUTICALS
  Company Number: ID-AstraZeneca-CH-00731854A

PATIENT
  Age: 61 Year
  Sex: Female

DRUGS (1)
  1. OSIMERTINIB [Suspect]
     Active Substance: OSIMERTINIB
     Dosage: 80 MILLIGRAM, QD
     Dates: start: 20211216

REACTIONS (1)
  - Death [Fatal]

NARRATIVE: CASE EVENT DATE: 20241014
